FAERS Safety Report 13606583 (Version 5)
Quarter: 2020Q2

REPORT INFORMATION
  Report Type: Report from Study
  Country: None (occurrence: CH)
  Receive Date: 20170602
  Receipt Date: 20200618
  Transmission Date: 20200713
  Serious: Yes (Hospitalization, Other)
  Sender: FDA-Public Use
  Company Number: CH-ABBVIE-17K-151-1994942-00

PATIENT
  Age: 72 Year
  Sex: Male
  Weight: 61 kg

DRUGS (26)
  1. NOVALGIN [Concomitant]
     Indication: PRODUCT USED FOR UNKNOWN INDICATION
     Dates: start: 20160801
  2. SINEMET [Concomitant]
     Active Substance: CARBIDOPA\LEVODOPA
     Indication: PRODUCT USED FOR UNKNOWN INDICATION
     Dosage: AT NIGHT TIME
     Dates: start: 20161012, end: 20170220
  3. DUODOPA [Suspect]
     Active Substance: CARBIDOPA\LEVODOPA
     Dosage: MD 7.5ML CRD (0600 TO 1400) 2.8ML/H CRD (1400 TO 2200) 3.5ML/H ED 1.0ML
     Route: 050
     Dates: start: 20161012
  4. MADOPAR [Concomitant]
     Active Substance: BENSERAZIDE HYDROCHLORIDE\LEVODOPA
     Indication: PRODUCT USED FOR UNKNOWN INDICATION
     Dates: start: 20160801
  5. BENERVA [Concomitant]
     Active Substance: THIAMINE HYDROCHLORIDE
     Indication: VITAMIN SUPPLEMENTATION
     Route: 048
     Dates: start: 20170929
  6. DUODOPA [Suspect]
     Active Substance: CARBIDOPA\LEVODOPA
     Dosage: MD 6ML, CRD 3.5ML/H, ED 1.5ML/H
     Route: 050
     Dates: end: 20170204
  7. DUODOPA [Suspect]
     Active Substance: CARBIDOPA\LEVODOPA
     Dosage: MD 7.5ML CRD (0600 TO 1400) 2.8ML/H CRD (1400 TO 2200) 3.5ML/H ED 1.0ML
     Route: 050
     Dates: start: 2017, end: 20170220
  8. DUODOPA [Suspect]
     Active Substance: CARBIDOPA\LEVODOPA
     Dosage: MORNING DOSE 7.3ML CRD (0600 TO 1400) 2.8ML/H  CRD (1400 TO 2200) 3.3ML/H EXTRA DOSE 1.0ML
     Route: 050
     Dates: start: 20170221, end: 20170508
  9. DUODOPA [Suspect]
     Active Substance: CARBIDOPA\LEVODOPA
     Dosage: MORNING DOSE 7.3ML CRD (0600 TO 1400) 2.6ML/H CRD (1400 TO 2200) 3.2ML/H EXTRA DOSE 1.0ML
     Route: 050
     Dates: start: 20170728, end: 20171005
  10. COMTAN [Concomitant]
     Active Substance: ENTACAPONE
     Indication: PRODUCT USED FOR UNKNOWN INDICATION
     Dates: start: 20160801
  11. METO ZEROK [Concomitant]
     Active Substance: METOPROLOL SUCCINATE
     Indication: AORTIC DISSECTION
     Route: 048
     Dates: start: 201701
  12. QUETIAPINE. [Concomitant]
     Active Substance: QUETIAPINE
     Indication: PRODUCT USED FOR UNKNOWN INDICATION
  13. REQUIP [Concomitant]
     Active Substance: ROPINIROLE HYDROCHLORIDE
     Indication: PRODUCT USED FOR UNKNOWN INDICATION
     Dates: start: 20160801
  14. ASPIRIN CARDIO [Concomitant]
     Active Substance: ASPIRIN
     Indication: AORTIC DISSECTION
     Route: 048
     Dates: start: 201701
  15. DUODOPA [Suspect]
     Active Substance: CARBIDOPA\LEVODOPA
     Indication: PARKINSON^S DISEASE
     Dosage: MORNING DOSE 6ML, CONTINUOUS RATE DAY 3.5ML/H, EXTRA DOSE 1.5ML/H
     Route: 050
     Dates: start: 20160928, end: 2016
  16. DUODOPA [Suspect]
     Active Substance: CARBIDOPA\LEVODOPA
     Dosage: MORNING DOSE 7.3ML CRD (0600 TO 1400) 2.9ML/H CRD (1400 TO 2200) 3.4ML/H EXTRA DOSE 1.0ML
     Route: 050
     Dates: start: 20170509, end: 20170727
  17. STALEVO [Concomitant]
     Active Substance: CARBIDOPA\ENTACAPONE\LEVODOPA
     Indication: PRODUCT USED FOR UNKNOWN INDICATION
     Dates: start: 20160801
  18. SINEMET [Concomitant]
     Active Substance: CARBIDOPA\LEVODOPA
     Dosage: AT NIGHT TIME
     Dates: start: 20170221, end: 20171005
  19. DUODOPA [Suspect]
     Active Substance: CARBIDOPA\LEVODOPA
     Dosage: MORNING DOSE 6ML, CONTINUOUS RATE DAY 3.3ML/H, EXTRA DOSE 1.5ML/H
     Route: 050
     Dates: start: 20170205, end: 2017
  20. DUODOPA [Suspect]
     Active Substance: CARBIDOPA\LEVODOPA
     Dosage: CONTINUOUS RATE 2.8ML/H
     Route: 050
     Dates: start: 20170508, end: 20170509
  21. DUODOPA [Suspect]
     Active Substance: CARBIDOPA\LEVODOPA
     Route: 050
     Dates: start: 20171005, end: 20171012
  22. DUODOPA [Suspect]
     Active Substance: CARBIDOPA\LEVODOPA
     Dosage: 2.8ML/H
     Route: 050
     Dates: start: 20171012
  23. DUODOPA [Suspect]
     Active Substance: CARBIDOPA\LEVODOPA
     Route: 050
  24. PK-MERZ [Concomitant]
     Active Substance: AMANTADINE
     Indication: PRODUCT USED FOR UNKNOWN INDICATION
     Dates: start: 20160801
  25. PANTOPRAZOL [Concomitant]
     Active Substance: PANTOPRAZOLE SODIUM
     Indication: OESOPHAGITIS
     Route: 048
     Dates: start: 2011, end: 201705
  26. VITARUBIN [Concomitant]
     Active Substance: CYANOCOBALAMIN
     Indication: VITAMIN SUPPLEMENTATION
     Route: 030
     Dates: start: 201010

REACTIONS (13)
  - Aortic dissection [Not Recovered/Not Resolved]
  - Urinary tract infection [Recovered/Resolved]
  - Weight decreased [Recovered/Resolved]
  - Weight decreased [Recovered/Resolved]
  - Device dislocation [Recovered/Resolved]
  - Back pain [Unknown]
  - Pain in extremity [Unknown]
  - Polyneuropathy [Not Recovered/Not Resolved]
  - On and off phenomenon [Unknown]
  - Tremor [Unknown]
  - Hypokinesia [Unknown]
  - Delirium [Recovered/Resolved]
  - Colon adenoma [Not Recovered/Not Resolved]

NARRATIVE: CASE EVENT DATE: 201610
